FAERS Safety Report 5766334-3 (Version None)
Quarter: 2008Q2

REPORT INFORMATION
  Report Type: 
  Country: None (occurrence: None)
  Receive Date: 20080611
  Receipt Date: 20080602
  Transmission Date: 20081010
  Serious: Yes (Life-Threatening, Hospitalization, Other)
  Sender: FDA-Public Use
  Company Number: FR-AMGEN-UK273027

PATIENT
  Sex: Male
  Weight: 70 kg

DRUGS (13)
  1. ARANESP [Suspect]
     Indication: RENAL FAILURE CHRONIC
     Route: 058
     Dates: start: 20061201, end: 20080301
  2. DIAMOX SRC [Suspect]
  3. ALPRESS [Concomitant]
     Route: 065
  4. IRBESARTAN [Concomitant]
     Route: 065
  5. ATENOLOL [Concomitant]
     Route: 065
  6. CALCIUM CARBONATE [Concomitant]
     Route: 065
  7. OMEPRAZOLE [Concomitant]
     Route: 065
  8. KARDEGIC [Concomitant]
     Route: 065
  9. LASILIX [Concomitant]
     Route: 065
  10. TAHOR [Concomitant]
     Route: 065
  11. ACETAMINOPHEN [Concomitant]
     Route: 065
  12. XALATAN [Concomitant]
     Route: 065
  13. ALPHAGAN [Concomitant]
     Route: 065

REACTIONS (1)
  - APLASIA PURE RED CELL [None]
